FAERS Safety Report 11859383 (Version 1)
Quarter: 2015Q4

REPORT INFORMATION
  Report Type: Spontaneous
  Country: CN (occurrence: CN)
  Receive Date: 20151221
  Receipt Date: 20151221
  Transmission Date: 20160305
  Serious: Yes (Other)
  Sender: FDA-Public Use
  Company Number: CN-BAXTER-2015BAX067501

PATIENT
  Age: 82 Year
  Sex: Male

DRUGS (8)
  1. 20% MANNITOL INJECTION [Suspect]
     Active Substance: MANNITOL
     Indication: DEHYDRATION
     Route: 041
     Dates: start: 20150528, end: 20150601
  2. 0.9% SODIUM CHLORIDE INJECTION [Suspect]
     Active Substance: SODIUM CHLORIDE
     Indication: MEDICATION DILUTION
     Route: 041
  3. PROMETHAZINE [Suspect]
     Active Substance: PROMETHAZINE\PROMETHAZINE HYDROCHLORIDE
     Indication: CHILLS
     Route: 030
  4. DEXAMETHASONE. [Suspect]
     Active Substance: DEXAMETHASONE
     Indication: DRUG HYPERSENSITIVITY
  5. CALCIUM GLUCONATE. [Suspect]
     Active Substance: CALCIUM GLUCONATE
     Indication: DRUG HYPERSENSITIVITY
  6. PROMETHAZINE [Suspect]
     Active Substance: PROMETHAZINE\PROMETHAZINE HYDROCHLORIDE
     Indication: DRUG HYPERSENSITIVITY
  7. DEXAMETHASONE. [Suspect]
     Active Substance: DEXAMETHASONE
     Indication: CHILLS
     Route: 042
  8. CALCIUM GLUCONATE. [Suspect]
     Active Substance: CALCIUM GLUCONATE
     Indication: CHILLS
     Route: 041

REACTIONS (3)
  - Pyrexia [Unknown]
  - Chills [Recovering/Resolving]
  - Drug hypersensitivity [Unknown]

NARRATIVE: CASE EVENT DATE: 20150531
